FAERS Safety Report 19622865 (Version 3)
Quarter: 2021Q4

REPORT INFORMATION
  Report Type: Report from Study
  Country: None (occurrence: US)
  Receive Date: 20210728
  Receipt Date: 20211011
  Transmission Date: 20220303
  Serious: Yes (Other)
  Sender: FDA-Public Use
  Company Number: US-ABBVIE-21K-163-4003471-00

PATIENT
  Age: 60 Year
  Sex: Female

DRUGS (3)
  1. HUMIRA [Suspect]
     Active Substance: ADALIMUMAB
     Indication: Rheumatoid arthritis
     Route: 058
  2. HUMIRA [Suspect]
     Active Substance: ADALIMUMAB
     Indication: Uveitis
     Route: 058
  3. PFIZER-BIONTECH COVID-19 VACCINE [Concomitant]
     Active Substance: TOZINAMERAN
     Indication: COVID-19 immunisation
     Route: 030

REACTIONS (9)
  - Intervertebral disc protrusion [Unknown]
  - Eye complication associated with device [Not Recovered/Not Resolved]
  - Eye pruritus [Not Recovered/Not Resolved]
  - Arthralgia [Unknown]
  - Nasopharyngitis [Recovering/Resolving]
  - Pain [Unknown]
  - Uveitis [Not Recovered/Not Resolved]
  - Drug ineffective [Not Recovered/Not Resolved]
  - Eye irritation [Not Recovered/Not Resolved]

NARRATIVE: CASE EVENT DATE: 20210701
